FAERS Safety Report 12199465 (Version 3)
Quarter: 2016Q2

REPORT INFORMATION
  Report Type: Spontaneous
  Country: US (occurrence: US)
  Receive Date: 20160322
  Receipt Date: 20160523
  Transmission Date: 20160815
  Serious: No
  Sender: FDA-Public Use
  Company Number: US-PFIZER INC-2016167071

PATIENT
  Age: 74 Year
  Sex: Male
  Weight: 72.57 kg

DRUGS (2)
  1. DEPO-MEDROL [Suspect]
     Active Substance: METHYLPREDNISOLONE ACETATE
     Indication: GOUT
     Dosage: 80MG ONE SUBCUTANEOUS INJECTION
     Route: 058
     Dates: start: 20160315
  2. DEPO-MEDROL [Suspect]
     Active Substance: METHYLPREDNISOLONE ACETATE
     Indication: ARTHRITIS

REACTIONS (10)
  - Incorrect route of drug administration [Unknown]
  - Hypoaesthesia oral [Unknown]
  - Lethargy [Unknown]
  - Drug ineffective [Unknown]
  - Burning sensation [Recovering/Resolving]
  - Feeling abnormal [Unknown]
  - Hypersensitivity [Unknown]
  - Restlessness [Not Recovered/Not Resolved]
  - Nervousness [Not Recovered/Not Resolved]
  - Disturbance in attention [Not Recovered/Not Resolved]

NARRATIVE: CASE EVENT DATE: 20160315
